FAERS Safety Report 10550233 (Version 1)
Quarter: 2014Q4

REPORT INFORMATION
  Report Type: Spontaneous
  Country: CN (occurrence: CN)
  Receive Date: 20141028
  Receipt Date: 20141028
  Transmission Date: 20150529
  Serious: Yes (Hospitalization)
  Sender: FDA-Public Use
  Company Number: CN-MYLANLABS-2014M1008697

PATIENT

DRUGS (1)
  1. DIGOXIN. [Suspect]
     Active Substance: DIGOXIN
     Dosage: 0.25 MG, BID
     Route: 065

REACTIONS (4)
  - Overdose [Recovering/Resolving]
  - Aneurysm ruptured [Recovering/Resolving]
  - Drug level increased [None]
  - Medication error [Recovering/Resolving]
